FAERS Safety Report 6685130-6 (Version None)
Quarter: 2010Q2

REPORT INFORMATION
  Report Type: 
  Country: None (occurrence: None)
  Receive Date: 20100416
  Receipt Date: 20100105
  Transmission Date: 20101027
  Serious: Yes (Death)
  Sender: FDA-Public Use
  Company Number: US-BRISTOL-MYERS SQUIBB COMPANY-14922223

PATIENT
  Sex: Female

DRUGS (1)
  1. PARAPLATIN [Suspect]
     Indication: BREAST CANCER METASTATIC

REACTIONS (1)
  - MALIGNANT NEOPLASM PROGRESSION [None]
